FAERS Safety Report 20290471 (Version 1)
Quarter: 2022Q1

REPORT INFORMATION
  Report Type: Spontaneous
  Country: US (occurrence: US)
  Receive Date: 20220104
  Receipt Date: 20220104
  Transmission Date: 20220423
  Serious: No
  Sender: FDA-Public Use
  Company Number: US-CELGENE-USA-20220100039

PATIENT
  Age: 63 Year
  Sex: Female

DRUGS (40)
  1. REVLIMID [Suspect]
     Active Substance: LENALIDOMIDE
     Indication: Plasma cell myeloma
     Dosage: 15 MILLIGRAM
     Route: 048
     Dates: start: 201209
  2. REVLIMID [Suspect]
     Active Substance: LENALIDOMIDE
     Dosage: 25 MILLIGRAM
     Route: 048
     Dates: start: 201210
  3. REVLIMID [Suspect]
     Active Substance: LENALIDOMIDE
     Dosage: 5 MILLIGRAM
     Route: 048
     Dates: start: 201212
  4. REVLIMID [Suspect]
     Active Substance: LENALIDOMIDE
     Dosage: 10 MILLIGRAM
     Route: 048
     Dates: start: 201305
  5. REVLIMID [Suspect]
     Active Substance: LENALIDOMIDE
     Dosage: 5 MILLIGRAM
     Route: 048
     Dates: start: 201504
  6. ACYCLOVIR [Concomitant]
     Active Substance: ACYCLOVIR
     Indication: Product used for unknown indication
     Route: 065
  7. ACYCLOVIR [Concomitant]
     Active Substance: ACYCLOVIR
     Dosage: 25 MILLIGRAM
     Route: 048
     Dates: start: 201210
  8. ACYCLOVIR [Concomitant]
     Active Substance: ACYCLOVIR
     Dosage: 5 MILLIGRAM
     Route: 048
     Dates: start: 201212
  9. ACYCLOVIR [Concomitant]
     Active Substance: ACYCLOVIR
     Dosage: 10 MILLIGRAM
     Route: 048
     Dates: start: 201305
  10. ACYCLOVIR [Concomitant]
     Active Substance: ACYCLOVIR
     Dosage: 5 MILLIGRAM
     Route: 048
     Dates: start: 201504
  11. ASPIRIN [Concomitant]
     Active Substance: ASPIRIN
     Indication: Product used for unknown indication
     Route: 065
  12. ASPIRIN [Concomitant]
     Active Substance: ASPIRIN
     Dosage: 25 MILLIGRAM
     Route: 048
     Dates: start: 201210
  13. ASPIRIN [Concomitant]
     Active Substance: ASPIRIN
     Dosage: 5 MILLIGRAM
     Route: 048
     Dates: start: 201212
  14. ASPIRIN [Concomitant]
     Active Substance: ASPIRIN
     Dosage: 10 MILLIGRAM
     Route: 048
     Dates: start: 201305
  15. ASPIRIN [Concomitant]
     Active Substance: ASPIRIN
     Dosage: 5 MILLIGRAM
     Route: 048
     Dates: start: 201504
  16. CALCIUM\VITAMIN D [Concomitant]
     Active Substance: CALCIUM\VITAMIN D
     Indication: Product used for unknown indication
     Route: 065
  17. CALCIUM\VITAMIN D [Concomitant]
     Active Substance: CALCIUM\VITAMIN D
     Dosage: 25 MILLIGRAM
     Route: 048
     Dates: start: 201210
  18. CALCIUM\VITAMIN D [Concomitant]
     Active Substance: CALCIUM\VITAMIN D
     Dosage: 5 MILLIGRAM
     Route: 048
     Dates: start: 201212
  19. CALCIUM\VITAMIN D [Concomitant]
     Active Substance: CALCIUM\VITAMIN D
     Dosage: 10 MILLIGRAM
     Route: 048
     Dates: start: 201305
  20. CALCIUM\VITAMIN D [Concomitant]
     Active Substance: CALCIUM\VITAMIN D
     Dosage: 5 MILLIGRAM
     Route: 048
     Dates: start: 201504
  21. CHOLESTYRAMINE [Concomitant]
     Active Substance: CHOLESTYRAMINE
     Indication: Product used for unknown indication
     Route: 065
  22. CHOLESTYRAMINE [Concomitant]
     Active Substance: CHOLESTYRAMINE
     Dosage: 25 MILLIGRAM
     Route: 048
     Dates: start: 201210
  23. CHOLESTYRAMINE [Concomitant]
     Active Substance: CHOLESTYRAMINE
     Dosage: 5 MILLIGRAM
     Route: 048
     Dates: start: 201212
  24. CHOLESTYRAMINE [Concomitant]
     Active Substance: CHOLESTYRAMINE
     Dosage: 10 MILLIGRAM
     Route: 048
     Dates: start: 201305
  25. CHOLESTYRAMINE [Concomitant]
     Active Substance: CHOLESTYRAMINE
     Dosage: 5 MILLIGRAM
     Route: 048
     Dates: start: 201504
  26. DILANTIN [Concomitant]
     Active Substance: PHENYTOIN
     Indication: Product used for unknown indication
     Route: 065
  27. DILANTIN [Concomitant]
     Active Substance: PHENYTOIN
     Dosage: 25 MILLIGRAM
     Route: 048
     Dates: start: 201210
  28. DILANTIN [Concomitant]
     Active Substance: PHENYTOIN
     Dosage: 5 MILLIGRAM
     Route: 048
     Dates: start: 201212
  29. DILANTIN [Concomitant]
     Active Substance: PHENYTOIN
     Dosage: 10 MILLIGRAM
     Route: 048
     Dates: start: 201305
  30. DILANTIN [Concomitant]
     Active Substance: PHENYTOIN
     Dosage: 5 MILLIGRAM
     Route: 048
     Dates: start: 201504
  31. FOLIC ACID [Concomitant]
     Active Substance: FOLIC ACID
     Indication: Product used for unknown indication
     Route: 065
  32. FOLIC ACID [Concomitant]
     Active Substance: FOLIC ACID
     Dosage: 25 MILLIGRAM
     Route: 048
     Dates: start: 201210
  33. FOLIC ACID [Concomitant]
     Active Substance: FOLIC ACID
     Dosage: 5 MILLIGRAM
     Route: 048
     Dates: start: 201212
  34. FOLIC ACID [Concomitant]
     Active Substance: FOLIC ACID
     Dosage: 10 MILLIGRAM
     Route: 048
     Dates: start: 201305
  35. FOLIC ACID [Concomitant]
     Active Substance: FOLIC ACID
     Dosage: 5 MILLIGRAM
     Route: 048
     Dates: start: 201504
  36. VITAMIN D2 [Concomitant]
     Active Substance: ERGOCALCIFEROL
     Indication: Product used for unknown indication
     Route: 065
  37. VITAMIN D2 [Concomitant]
     Active Substance: ERGOCALCIFEROL
     Dosage: 25 MILLIGRAM
     Route: 048
     Dates: start: 201210
  38. VITAMIN D2 [Concomitant]
     Active Substance: ERGOCALCIFEROL
     Dosage: 5 MILLIGRAM
     Route: 048
     Dates: start: 201212
  39. VITAMIN D2 [Concomitant]
     Active Substance: ERGOCALCIFEROL
     Dosage: 10 MILLIGRAM
     Route: 048
     Dates: start: 201305
  40. VITAMIN D2 [Concomitant]
     Active Substance: ERGOCALCIFEROL
     Dosage: 5 MILLIGRAM
     Route: 048
     Dates: start: 201504

REACTIONS (2)
  - Diarrhoea [Unknown]
  - Muscle spasms [Unknown]

NARRATIVE: CASE EVENT DATE: 20121231
